FAERS Safety Report 10180287 (Version 1)
Quarter: 2014Q2

REPORT INFORMATION
  Report Type: Spontaneous
  Country: US (occurrence: DE)
  Receive Date: 20140519
  Receipt Date: 20140519
  Transmission Date: 20141212
  Serious: Yes (Hospitalization)
  Sender: FDA-Public Use
  Company Number: DE-FRI-1000067413

PATIENT
  Age: 64 Year
  Sex: Female
  Weight: 98 kg

DRUGS (1)
  1. ROFLUMILAST [Suspect]
     Indication: CHRONIC OBSTRUCTIVE PULMONARY DISEASE
     Dosage: 500 MCG
     Dates: start: 20111101

REACTIONS (2)
  - Pulmonary embolism [Recovered/Resolved]
  - Thrombosis [Not Recovered/Not Resolved]
